FAERS Safety Report 20175142 (Version 1)
Quarter: 2021Q4

REPORT INFORMATION
  Report Type: Spontaneous
  Country: US (occurrence: None)
  Receive Date: 20211209
  Receipt Date: 20211209
  Transmission Date: 20220303
  Serious: No
  Sender: FDA-Public Use
  Company Number: None

PATIENT
  Age: 58 Year
  Sex: Female
  Weight: 67.5 kg

DRUGS (2)
  1. CHANTIX [Suspect]
     Active Substance: VARENICLINE TARTRATE
     Indication: Smoking cessation therapy
     Dosage: OTHER QUANTITY : 56 TABLET(S);?FREQUENCY : DAILY;?
     Route: 048
     Dates: start: 20210630, end: 20210801
  2. CHANTIX [Suspect]
     Active Substance: VARENICLINE TARTRATE
     Indication: Smoking cessation therapy
     Dosage: OTHER QUANTITY : 56 TABLET(S);?FREQUENCY : DAILY;?
     Route: 048
     Dates: start: 20210630, end: 20210801

REACTIONS (1)
  - Malaise [None]

NARRATIVE: CASE EVENT DATE: 20210801
